FAERS Safety Report 24371317 (Version 1)
Quarter: 2024Q3

REPORT INFORMATION
  Report Type: Spontaneous
  Country: TN (occurrence: TN)
  Receive Date: 20240927
  Receipt Date: 20240927
  Transmission Date: 20241016
  Serious: Yes (Hospitalization)
  Sender: ROCHE
  Company Number: TN-ROCHE-10000085927

PATIENT
  Age: 7 Year
  Sex: Female

DRUGS (1)
  1. ACTEMRA [Suspect]
     Active Substance: TOCILIZUMAB
     Indication: Product used for unknown indication
     Route: 065

REACTIONS (4)
  - Juvenile idiopathic arthritis [Unknown]
  - Pyrexia [Unknown]
  - Chills [Unknown]
  - Product complaint [Unknown]
